FAERS Safety Report 12720236 (Version 1)
Quarter: 2016Q3

REPORT INFORMATION
  Report Type: Spontaneous
  Country: DE (occurrence: DE)
  Receive Date: 20160907
  Receipt Date: 20160907
  Transmission Date: 20161109
  Serious: Yes (Life-Threatening)
  Sender: FDA-Public Use
  Company Number: DE-SUN PHARMACEUTICAL INDUSTRIES LTD-2016RR-123447

PATIENT
  Age: 76 Year
  Sex: Male
  Weight: 92 kg

DRUGS (1)
  1. CEFUROXIME. [Suspect]
     Active Substance: CEFUROXIME
     Indication: PRODUCT USED FOR UNKNOWN INDICATION
     Dosage: 1500 MG, PERIOPERATIVE ANTIBIOTIC PROHYLAXIS; AT THIS TIME
     Route: 042

REACTIONS (3)
  - Cardiac arrest [Unknown]
  - Anaphylactic shock [Unknown]
  - Resuscitation [Unknown]

NARRATIVE: CASE EVENT DATE: 20160816
